FAERS Safety Report 11638431 (Version 1)
Quarter: 2015Q4

REPORT INFORMATION
  Report Type: Spontaneous
  Country: US (occurrence: US)
  Receive Date: 20151016
  Receipt Date: 20151016
  Transmission Date: 20160304
  Serious: Yes (Hospitalization)
  Sender: FDA-Public Use
  Company Number: US-JNJFOC-20150415447

PATIENT
  Age: 59 Year
  Sex: Female
  Weight: 120 kg

DRUGS (50)
  1. PREDNISONE. [Concomitant]
     Active Substance: PREDNISONE
  2. ATIVAN [Concomitant]
     Active Substance: LORAZEPAM
     Indication: NAUSEA
     Route: 048
  3. CLOTRIMAZOLE. [Concomitant]
     Active Substance: CLOTRIMAZOLE
  4. COLACE [Concomitant]
     Active Substance: DOCUSATE SODIUM
     Route: 048
  5. FAMCICLOVIR. [Concomitant]
     Active Substance: FAMCICLOVIR
     Route: 048
  6. TYLENOL [Concomitant]
     Active Substance: ACETAMINOPHEN
     Indication: BODY TEMPERATURE
     Route: 048
  7. SYMBICORT [Concomitant]
     Active Substance: BUDESONIDE\FORMOTEROL FUMARATE DIHYDRATE
  8. TYLENOL [Concomitant]
     Active Substance: ACETAMINOPHEN
     Indication: HEADACHE
     Route: 048
  9. IMBRUVICA [Suspect]
     Active Substance: IBRUTINIB
     Indication: CHRONIC LYMPHOCYTIC LEUKAEMIA
     Route: 048
     Dates: start: 20140910, end: 201410
  10. SENNOSIDE [Concomitant]
     Active Substance: SENNOSIDES
  11. OXYCONTIN [Concomitant]
     Active Substance: OXYCODONE HYDROCHLORIDE
     Dosage: 10 MG Q12H
     Route: 048
  12. ATIVAN [Concomitant]
     Active Substance: LORAZEPAM
     Indication: NAUSEA
     Dosage: 1 MG Q6H PRN
     Route: 048
  13. ATIVAN [Concomitant]
     Active Substance: LORAZEPAM
     Indication: ANXIETY
     Dosage: 1 MG Q6H PRN
     Route: 048
  14. SYNTHROID [Concomitant]
     Active Substance: LEVOTHYROXINE SODIUM
     Route: 048
  15. LASIX [Concomitant]
     Active Substance: FUROSEMIDE
  16. AMBIEN [Concomitant]
     Active Substance: ZOLPIDEM TARTRATE
     Indication: INSOMNIA
     Dosage: 5 MG HS PRN
     Route: 048
  17. URSODIOL. [Concomitant]
     Active Substance: URSODIOL
     Route: 048
  18. GABAPENTIN. [Concomitant]
     Active Substance: GABAPENTIN
     Route: 048
  19. TACROLIMUS. [Concomitant]
     Active Substance: TACROLIMUS
     Route: 048
  20. IMBRUVICA [Suspect]
     Active Substance: IBRUTINIB
     Indication: CHRONIC LYMPHOCYTIC LEUKAEMIA
     Route: 048
     Dates: start: 201410, end: 20141110
  21. IMBRUVICA [Suspect]
     Active Substance: IBRUTINIB
     Indication: CHRONIC LYMPHOCYTIC LEUKAEMIA
     Route: 048
     Dates: start: 2015
  22. IMBRUVICA [Suspect]
     Active Substance: IBRUTINIB
     Indication: MANTLE CELL LYMPHOMA
     Route: 048
     Dates: start: 201410, end: 20141110
  23. COMPAZINE [Concomitant]
     Active Substance: PROCHLORPERAZINE MALEATE
  24. TYLENOL [Concomitant]
     Active Substance: ACETAMINOPHEN
     Indication: BODY TEMPERATURE
     Route: 048
  25. FLUDARABINE [Concomitant]
     Active Substance: FLUDARABINE PHOSPHATE
     Indication: MANTLE CELL LYMPHOMA
     Dates: start: 201503, end: 201503
  26. ONDANSETRON [Concomitant]
     Active Substance: ONDANSETRON
  27. VALTREX [Concomitant]
     Active Substance: VALACYCLOVIR HYDROCHLORIDE
  28. IMBRUVICA [Suspect]
     Active Substance: IBRUTINIB
     Indication: MANTLE CELL LYMPHOMA
     Route: 048
     Dates: start: 20140910, end: 201410
  29. BACTRIM [Concomitant]
     Active Substance: SULFAMETHOXAZOLE\TRIMETHOPRIM
  30. TYLENOL [Concomitant]
     Active Substance: ACETAMINOPHEN
     Indication: PAIN
     Dosage: 650 MG Q6H PRN
     Route: 048
  31. SENNOSIDE [Concomitant]
     Active Substance: SENNOSIDES
  32. FAMOTIDINE. [Concomitant]
     Active Substance: FAMOTIDINE
  33. ATIVAN [Concomitant]
     Active Substance: LORAZEPAM
     Indication: ANXIETY
     Route: 048
  34. ADVAIR HFA [Concomitant]
     Active Substance: FLUTICASONE PROPIONATE\SALMETEROL XINAFOATE
     Dosage: 1 PUFF BID
     Route: 050
  35. TYLENOL [Concomitant]
     Active Substance: ACETAMINOPHEN
     Indication: PAIN
     Route: 048
  36. BUSULFAN [Concomitant]
     Active Substance: BUSULFAN
     Indication: MANTLE CELL LYMPHOMA
     Dates: start: 201503, end: 201503
  37. IMBRUVICA [Suspect]
     Active Substance: IBRUTINIB
     Indication: MANTLE CELL LYMPHOMA
     Route: 048
     Dates: start: 2015
  38. OXYCODONE [Concomitant]
     Active Substance: OXYCODONE
     Indication: PAIN
     Dosage: 5 MG Q4H PRN
     Route: 048
  39. OMEPRAZOLE. [Concomitant]
     Active Substance: OMEPRAZOLE
     Route: 048
  40. MAGNESIUM OXIDE. [Concomitant]
     Active Substance: MAGNESIUM OXIDE
     Route: 048
  41. NYSTATIN. [Concomitant]
     Active Substance: NYSTATIN
  42. IMBRUVICA [Suspect]
     Active Substance: IBRUTINIB
     Indication: CHRONIC LYMPHOCYTIC LEUKAEMIA
     Route: 048
     Dates: start: 2014, end: 20150310
  43. IMBRUVICA [Suspect]
     Active Substance: IBRUTINIB
     Indication: MANTLE CELL LYMPHOMA
     Route: 048
     Dates: start: 2014, end: 20150310
  44. BENZONATATE. [Concomitant]
     Active Substance: BENZONATATE
  45. CYMBALTA [Concomitant]
     Active Substance: DULOXETINE HYDROCHLORIDE
     Route: 048
  46. TYLENOL [Concomitant]
     Active Substance: ACETAMINOPHEN
     Indication: PAIN
     Route: 048
  47. TYLENOL [Concomitant]
     Active Substance: ACETAMINOPHEN
     Indication: BODY TEMPERATURE
     Dosage: 650 MG Q6H PRN
     Route: 048
  48. TYLENOL [Concomitant]
     Active Substance: ACETAMINOPHEN
     Indication: HEADACHE
     Dosage: 650 MG Q6H PRN
     Route: 048
  49. TYLENOL [Concomitant]
     Active Substance: ACETAMINOPHEN
     Indication: HEADACHE
     Route: 048
  50. FLUCONAZOLE. [Concomitant]
     Active Substance: FLUCONAZOLE
     Route: 048

REACTIONS (24)
  - Dysuria [Unknown]
  - Nausea [Recovering/Resolving]
  - Cough [Recovering/Resolving]
  - Chills [Recovered/Resolved]
  - Pneumocystis jirovecii pneumonia [Recovered/Resolved]
  - Splenomegaly [Not Recovered/Not Resolved]
  - Molluscum contagiosum [Unknown]
  - Headache [Recovering/Resolving]
  - Respiratory failure [Recovered/Resolved]
  - Bronchiolitis [Recovered/Resolved]
  - Hyperglycaemia [Unknown]
  - Weight increased [Recovering/Resolving]
  - Catheter site cellulitis [Recovered/Resolved]
  - Immunoglobulins decreased [Unknown]
  - Nasal congestion [Recovering/Resolving]
  - Depression [Recovering/Resolving]
  - Constipation [Recovered/Resolved]
  - Pyrexia [Recovered/Resolved]
  - Decreased appetite [Recovered/Resolved]
  - Back pain [Unknown]
  - Throat lesion [Unknown]
  - Oedema peripheral [Recovered/Resolved]
  - Abdominal pain [Recovered/Resolved]
  - Abdominal pain upper [Recovering/Resolving]

NARRATIVE: CASE EVENT DATE: 201410
